FAERS Safety Report 10879662 (Version 1)
Quarter: 2015Q1

REPORT INFORMATION
  Report Type: Report from Study
  Country: DE (occurrence: DE)
  Receive Date: 20150302
  Receipt Date: 20150302
  Transmission Date: 20150721
  Serious: Yes (Hospitalization, Other)
  Sender: FDA-Public Use
  Company Number: DE-MILLENNIUM PHARMACEUTICALS, INC.-2013-03309

PATIENT
  Age: 66 Year
  Sex: Male

DRUGS (14)
  1. REVLIMID [Concomitant]
     Active Substance: LENALIDOMIDE
     Indication: PLASMA CELL MYELOMA
     Dosage: UNK
     Dates: start: 20130315, end: 20130729
  2. PIPERACILLIN                       /00502402/ [Concomitant]
     Dosage: UNK
     Dates: start: 20130317, end: 20130411
  3. VELCADE [Suspect]
     Active Substance: BORTEZOMIB
     Indication: PLASMA CELL MYELOMA
     Dosage: UNK
     Route: 042
     Dates: start: 20130107, end: 20130304
  4. IMIPENEM [Concomitant]
     Active Substance: IMIPENEM
  5. PREDNISOLONE. [Concomitant]
     Active Substance: PREDNISOLONE
     Dosage: UNK
     Dates: start: 20130107, end: 20130304
  6. PREDNISOLONE. [Concomitant]
     Active Substance: PREDNISOLONE
     Dosage: UNK
     Dates: start: 20130327
  7. COTRIM FORTE EU RHO [Concomitant]
     Dosage: UNK
     Dates: start: 20121024
  8. BISPHOSPHONATES [Concomitant]
     Active Substance: UNSPECIFIED INGREDIENT
     Dosage: UNK
     Dates: start: 20120507
  9. PHENPROCOUMON [Concomitant]
     Active Substance: PHENPROCOUMON
  10. DEXAMETHASONE. [Concomitant]
     Active Substance: DEXAMETHASONE
     Indication: PLASMA CELL MYELOMA
     Dosage: UNK
     Dates: start: 20130316, end: 20130729
  11. ENOXAPARIN [Concomitant]
     Active Substance: ENOXAPARIN
     Dosage: UNK
     Dates: start: 20121023
  12. ACICLOVIR [Concomitant]
     Active Substance: ACYCLOVIR
     Dosage: UNK
     Dates: start: 20121020
  13. CLARITHROMYCIN. [Concomitant]
     Active Substance: CLARITHROMYCIN
     Dosage: UNK
     Dates: start: 20130317, end: 201304
  14. MOXIFLOXACIN [Concomitant]
     Active Substance: MOXIFLOXACIN
     Dosage: UNK
     Dates: start: 20130314, end: 20130319

REACTIONS (2)
  - Bronchitis [Recovered/Resolved]
  - Circulatory collapse [Recovered/Resolved]

NARRATIVE: CASE EVENT DATE: 20130409
